FAERS Safety Report 8738017 (Version 2)
Quarter: 2012Q4

REPORT INFORMATION
  Report Type: 
  Country: IL (occurrence: IL)
  Receive Date: 20120823
  Receipt Date: 20120917
  Transmission Date: 20130627
  Serious: Yes (Other)
  Sender: FDA-Public Use
  Company Number: IL-BIOGENIDEC-2012BI032385

PATIENT
  Age: 19 Year
  Sex: Male

DRUGS (7)
  1. AVONEX [Suspect]
     Indication: MULTIPLE SCLEROSIS
     Route: 030
     Dates: start: 201203, end: 201206
  2. AVONEX [Suspect]
     Indication: MULTIPLE SCLEROSIS
     Route: 030
     Dates: start: 201207
  3. COPAXONE [Concomitant]
     Indication: MULTIPLE SCLEROSIS
     Dates: start: 201206, end: 201207
  4. MODAFINIL [Concomitant]
  5. FAMPRIDINE [Concomitant]
  6. MEDICAL CANNABIS [Concomitant]
  7. CYCLOPHOSPHAMIDE [Concomitant]
     Dates: start: 2012

REACTIONS (4)
  - HIV infection [Unknown]
  - Liver function test abnormal [Recovered/Resolved]
  - Influenza like illness [Unknown]
  - Syncope [Unknown]
